FAERS Safety Report 25990081 (Version 1)
Quarter: 2025Q4

REPORT INFORMATION
  Report Type: Spontaneous
  Country: BR (occurrence: BR)
  Receive Date: 20251103
  Receipt Date: 20251103
  Transmission Date: 20260117
  Serious: Yes (Death, Hospitalization)
  Sender: ASTELLAS
  Company Number: BR-ASTELLAS-2025-AER-060624

PATIENT
  Age: 50 Year
  Sex: Male

DRUGS (1)
  1. XOSPATA [Suspect]
     Active Substance: GILTERITINIB
     Indication: Acute myeloid leukaemia
     Route: 065

REACTIONS (8)
  - Death [Fatal]
  - Portal vein thrombosis [Unknown]
  - Acute hepatic failure [Unknown]
  - Shock [Unknown]
  - Respiratory failure [Unknown]
  - Metabolic acidosis [Unknown]
  - Amylase increased [Unknown]
  - Lipase increased [Unknown]
